FAERS Safety Report 15268799 (Version 1)
Quarter: 2018Q3

REPORT INFORMATION
  Report Type: Spontaneous
  Country: US (occurrence: US)
  Receive Date: 20180813
  Receipt Date: 20180813
  Transmission Date: 20181010
  Serious: Yes (Hospitalization, Other)
  Sender: FDA-Public Use
  Company Number: US-AUROBINDO-AUR-APL-2018-040776

PATIENT
  Age: 46 Year
  Sex: Female

DRUGS (5)
  1. PREDNISONE. [Suspect]
     Active Substance: PREDNISONE
     Indication: COUGH
  2. PREDNISONE. [Suspect]
     Active Substance: PREDNISONE
     Indication: CHILLS
     Dosage: UNK
     Route: 065
  3. FLUTICASONE. [Suspect]
     Active Substance: FLUTICASONE
     Indication: ASTHMA
     Dosage: UNK
  4. PREDNISONE. [Suspect]
     Active Substance: PREDNISONE
     Indication: HEADACHE
  5. PREDNISONE. [Suspect]
     Active Substance: PREDNISONE
     Indication: DIARRHOEA

REACTIONS (2)
  - Bronchopleural fistula [Unknown]
  - Bronchopulmonary aspergillosis [Unknown]
